FAERS Safety Report 5395596-X (Version None)
Quarter: 2007Q3

REPORT INFORMATION
  Report Type: 
  Country: None (occurrence: None)
  Receive Date: 20070724
  Receipt Date: 20070710
  Transmission Date: 20080115
  Serious: No
  Sender: FDA-Public Use
  Company Number: US-ELI_LILLY_AND_COMPANY-US200707002874

PATIENT
  Age: 16 Year
  Sex: Male

DRUGS (3)
  1. CYMBALTA [Suspect]
     Dosage: 60 MG, DAILY (1/D)
  2. CLOZARIL [Concomitant]
  3. ABILIFY [Concomitant]
     Dosage: UNK, UNK

REACTIONS (1)
  - ASPARTATE AMINOTRANSFERASE INCREASED [None]
